FAERS Safety Report 5226573-7 (Version None)
Quarter: 2007Q1

REPORT INFORMATION
  Report Type: 
  Country: None (occurrence: None)
  Receive Date: 20070201
  Receipt Date: 20070129
  Transmission Date: 20070707
  Serious: Yes (Hospitalization)
  Sender: FDA-Public Use
  Company Number: KR-SANOFI-SYNTHELABO-F01200700118

PATIENT
  Sex: Female

DRUGS (3)
  1. HYDROCHLOROTHIAZIDE [Concomitant]
     Dates: start: 19960615, end: 20061214
  2. CAPECITABINE [Suspect]
     Dosage: DAYS 1-15 (2 WEEKS ON TREATMENT, 1 WEEK REST)
     Route: 048
     Dates: start: 20061123, end: 20061207
  3. OXALIPLATIN [Suspect]
     Indication: GASTRIC CANCER
     Route: 041
     Dates: start: 20061123, end: 20061123

REACTIONS (1)
  - BONE MARROW FAILURE [None]
